FAERS Safety Report 5304187-8 (Version None)
Quarter: 2007Q2

REPORT INFORMATION
  Report Type: 
  Country: None (occurrence: None)
  Receive Date: 20070423
  Receipt Date: 20070410
  Transmission Date: 20071010
  Serious: Yes (Hospitalization)
  Sender: FDA-Public Use
  Company Number: PHBS2007FI06105

PATIENT
  Age: 30 Year
  Sex: Male

DRUGS (8)
  1. TEMESTA [Concomitant]
     Dosage: 2 MG/DAY
  2. NEUROBION FORTE [Concomitant]
  3. KALCIPOS-D [Concomitant]
  4. ZOPINOX [Concomitant]
     Dosage: 7.5 MG WHEN NEEDED
  5. ZYPREXA [Concomitant]
  6. KLAMATH WEED PREPARATION [Concomitant]
  7. CLOZAPINE [Suspect]
     Indication: SCHIZOPHRENIA
     Route: 065
     Dates: start: 20060401
  8. CLOZAPINE [Suspect]
     Dosage: 200 MG/DAY
     Route: 065
     Dates: start: 20070131, end: 20070307

REACTIONS (3)
  - AGRANULOCYTOSIS [None]
  - NEUTROPENIA [None]
  - RESPIRATORY TRACT INFECTION [None]
